FAERS Safety Report 6141252-X (Version None)
Quarter: 2009Q2

REPORT INFORMATION
  Report Type: 
  Country: None (occurrence: None)
  Receive Date: 20090402
  Receipt Date: 20090325
  Transmission Date: 20091009
  Serious: Yes (Hospitalization)
  Sender: FDA-Public Use
  Company Number: FR-WATSON-2009-02006

PATIENT
  Age: 31 Year
  Sex: Female

DRUGS (3)
  1. AFEDITAB (WATSON LABORATORIES) [Suspect]
     Indication: TOCOLYSIS
     Dosage: 40 MG, SINGLE
     Route: 048
  2. AFEDITAB (WATSON LABORATORIES) [Suspect]
     Dosage: 40 MG, Q12H
     Route: 048
  3. NICARDIPINE (WATSON LABORATORIES) [Suspect]
     Indication: TOCOLYSIS
     Dosage: 4 MG, Q1H
     Route: 042

REACTIONS (1)
  - ACUTE PULMONARY OEDEMA [None]
